FAERS Safety Report 7716025-4 (Version None)
Quarter: 2011Q3

REPORT INFORMATION
  Report Type: 
  Country: None (occurrence: None)
  Receive Date: 20110823
  Receipt Date: 20110812
  Transmission Date: 20111222
  Serious: Yes (Death)
  Sender: FDA-Public Use
  Company Number: 2011002135

PATIENT
  Age: 57 Year
  Sex: Male
  Weight: 74 kg

DRUGS (10)
  1. ERLOTINIB HYDROCHLORIDE [Suspect]
     Indication: HEPATIC NEOPLASM MALIGNANT
     Dosage: 150 MG, UID/QD, ORAL, 100 MG, UID/QD, ORAL, 100 MG, UID/QD, ORAL
     Route: 048
     Dates: start: 20091013, end: 20100829
  2. ERLOTINIB HYDROCHLORIDE [Suspect]
     Indication: HEPATIC NEOPLASM MALIGNANT
     Dosage: 150 MG, UID/QD, ORAL, 100 MG, UID/QD, ORAL, 100 MG, UID/QD, ORAL
     Route: 048
     Dates: start: 20100915, end: 20101017
  3. ERLOTINIB HYDROCHLORIDE [Suspect]
     Indication: HEPATIC NEOPLASM MALIGNANT
     Dosage: 150 MG, UID/QD, ORAL, 100 MG, UID/QD, ORAL, 100 MG, UID/QD, ORAL
     Route: 048
     Dates: start: 20101019, end: 20110503
  4. VISIPAQUE [Concomitant]
  5. TELEBRIX (IOXITALAMATE MEGLUMINE) [Concomitant]
  6. SORAFENIB (SORAFENIB) TABLET [Suspect]
     Indication: HEPATIC NEOPLASM MALIGNANT
     Dosage: 400 MG, BID, ORAL, 400 MG, BID, ORAL, 400 MG, UID/QD, ORAL, 400 MG, BID, ORAL, 400 MG, TOTAL DOSE,
     Route: 048
     Dates: start: 20100915, end: 20101016
  7. SORAFENIB (SORAFENIB) TABLET [Suspect]
     Indication: HEPATIC NEOPLASM MALIGNANT
     Dosage: 400 MG, BID, ORAL, 400 MG, BID, ORAL, 400 MG, UID/QD, ORAL, 400 MG, BID, ORAL, 400 MG, TOTAL DOSE,
     Route: 048
     Dates: start: 20101019, end: 20110502
  8. SORAFENIB (SORAFENIB) TABLET [Suspect]
     Indication: HEPATIC NEOPLASM MALIGNANT
     Dosage: 400 MG, BID, ORAL, 400 MG, BID, ORAL, 400 MG, UID/QD, ORAL, 400 MG, BID, ORAL, 400 MG, TOTAL DOSE,
     Route: 048
     Dates: start: 20101017, end: 20101018
  9. SORAFENIB (SORAFENIB) TABLET [Suspect]
     Indication: HEPATIC NEOPLASM MALIGNANT
     Dosage: 400 MG, BID, ORAL, 400 MG, BID, ORAL, 400 MG, UID/QD, ORAL, 400 MG, BID, ORAL, 400 MG, TOTAL DOSE,
     Route: 048
     Dates: start: 20110503, end: 20110503
  10. SORAFENIB (SORAFENIB) TABLET [Suspect]
     Indication: HEPATIC NEOPLASM MALIGNANT
     Dosage: 400 MG, BID, ORAL, 400 MG, BID, ORAL, 400 MG, UID/QD, ORAL, 400 MG, BID, ORAL, 400 MG, TOTAL DOSE,
     Route: 048
     Dates: start: 20091013, end: 20100829

REACTIONS (4)
  - SUDDEN DEATH [None]
  - ARRHYTHMIA [None]
  - CARDIO-RESPIRATORY ARREST [None]
  - PULMONARY EMBOLISM [None]
